FAERS Safety Report 4263399-5 (Version None)
Quarter: 2004Q1

REPORT INFORMATION
  Report Type: 
  Country: None (occurrence: None)
  Receive Date: 20040104
  Receipt Date: 20040104
  Transmission Date: 20041129
  Serious: Yes (Other)
  Sender: FDA-Public Use
  Company Number: None

PATIENT
  Age: 69 Year
  Sex: Male
  Weight: 74.8435 kg

DRUGS (12)
  1. SIMVASTATIN [Suspect]
     Indication: HYPERCHOLESTEROLAEMIA
     Dosage: 40 MG AT BEDTIME ORAL
     Route: 048
     Dates: start: 20020507, end: 20031007
  2. GATIFLOXACIN [Concomitant]
  3. GENTAMICIN SULFATE [Concomitant]
  4. TERAZOSIN HCL [Concomitant]
  5. FEXOFENADINE HCL [Concomitant]
  6. ACETAMINOPHEN W/ CODEINE [Concomitant]
  7. ALBUTEROL/IPRATROPIUM [Concomitant]
  8. CETIRIZINE HCL [Concomitant]
  9. FLUNIOSOLIDE [Concomitant]
  10. FOSINOPRIL NA [Concomitant]
  11. CHOLESTYRAMINE [Concomitant]
  12. OMEPRAZOLE [Concomitant]

REACTIONS (4)
  - ARTHRALGIA [None]
  - BACK PAIN [None]
  - NECK PAIN [None]
  - PAIN IN EXTREMITY [None]
